FAERS Safety Report 8342019-4 (Version None)
Quarter: 2012Q2

REPORT INFORMATION
  Report Type: 
  Country: None (occurrence: None)
  Receive Date: 20120507
  Receipt Date: 20120501
  Transmission Date: 20120825
  Serious: Yes (Hospitalization, Other)
  Sender: FDA-Public Use
  Company Number: GB-GILEAD-E2B_00001183

PATIENT
  Sex: Male

DRUGS (9)
  1. INHALER [Concomitant]
     Route: 065
  2. POTASSIUM CHLORIDE [Concomitant]
     Route: 065
  3. INHALER [Concomitant]
     Route: 065
  4. VIAGRA [Concomitant]
     Route: 065
  5. FUROSEMIDE [Concomitant]
     Route: 065
  6. POTASSIUM CHLORIDE [Concomitant]
     Route: 065
  7. AMBRISENTAN [Suspect]
     Indication: PULMONARY HYPERTENSION
     Route: 048
     Dates: start: 20100313
  8. FUROSEMIDE [Concomitant]
     Route: 065
  9. VIAGRA [Concomitant]
     Route: 065

REACTIONS (3)
  - PULMONARY OEDEMA [None]
  - HYPOAESTHESIA [None]
  - FOOT FRACTURE [None]
